FAERS Safety Report 4933168-9 (Version None)
Quarter: 2006Q1

REPORT INFORMATION
  Report Type: 
  Country: None (occurrence: None)
  Receive Date: 20060306
  Receipt Date: 20050428
  Transmission Date: 20060701
  Serious: Yes (Death, Hospitalization)
  Sender: FDA-Public Use
  Company Number: US-MERCK-0505USA00167

PATIENT
  Age: 51 Year
  Sex: Male
  Weight: 78 kg

DRUGS (4)
  1. VIOXX [Suspect]
     Indication: LUMBAR RADICULOPATHY
     Route: 048
     Dates: start: 19991116, end: 20020414
  2. VIOXX [Suspect]
     Route: 048
     Dates: start: 20020414, end: 20020424
  3. PRILOSEC [Concomitant]
     Route: 048
  4. VIOXX [Suspect]
     Route: 065

REACTIONS (4)
  - CARDIAC FAILURE ACUTE [None]
  - CORONARY ARTERY DISEASE [None]
  - INGUINAL HERNIA [None]
  - MUSCLE STRAIN [None]
